FAERS Safety Report 4571449-1 (Version None)
Quarter: 2005Q1

REPORT INFORMATION
  Report Type: 
  Country: None (occurrence: None)
  Receive Date: 20050207
  Receipt Date: 20050124
  Transmission Date: 20050727
  Serious: Yes (Other)
  Sender: FDA-Public Use
  Company Number: US-JNJFOC-20041204517

PATIENT
  Age: 34 Year
  Sex: Male

DRUGS (4)
  1. REMICADE [Suspect]
     Indication: INFLAMMATORY BOWEL DISEASE
  2. REMICADE [Suspect]
  3. FOLIC ACID [Concomitant]
  4. AZULFIDINE [Concomitant]

REACTIONS (3)
  - FISTULA [None]
  - PSORIASIS [None]
  - SKIN ULCER [None]
